FAERS Safety Report 6113937-2 (Version None)
Quarter: 2009Q1

REPORT INFORMATION
  Report Type: 
  Country: None (occurrence: None)
  Receive Date: 20090312
  Receipt Date: 20090203
  Transmission Date: 20090719
  Serious: No
  Sender: FDA-Public Use
  Company Number: US-ABBOTT-09P-163-0501743-00

PATIENT
  Sex: Female
  Weight: 70.37 kg

DRUGS (3)
  1. LUPRON DEPOT [Suspect]
     Indication: ENDOMETRIOSIS
     Dates: start: 20090107
  2. BIRTH CONTROL PILLS [Concomitant]
     Indication: CONTRACEPTION
     Dates: end: 20090107
  3. ACTIVELLA [Concomitant]
     Indication: HORMONE THERAPY

REACTIONS (4)
  - ABDOMINAL PAIN [None]
  - DRUG INEFFECTIVE [None]
  - MENSTRUAL DISORDER [None]
  - NAUSEA [None]
